FAERS Safety Report 25295566 (Version 2)
Quarter: 2025Q2

REPORT INFORMATION
  Report Type: Spontaneous
  Country: US (occurrence: US)
  Receive Date: 20250511
  Receipt Date: 20250528
  Transmission Date: 20250716
  Serious: No
  Sender: SANOFI AVENTIS
  Company Number: US-SA-2025SA129874

PATIENT
  Age: 65 Year
  Sex: Female

DRUGS (2)
  1. DUPIXENT [Suspect]
     Active Substance: DUPILUMAB
     Indication: Idiopathic urticaria
     Dosage: 300 MG, QOW
     Route: 058
  2. DUPIXENT [Suspect]
     Active Substance: DUPILUMAB
     Indication: Chronic spontaneous urticaria

REACTIONS (8)
  - Fatigue [Unknown]
  - Muscular weakness [Unknown]
  - Increased appetite [Unknown]
  - Migraine [Unknown]
  - Thyroid stimulating hormone deficiency [Unknown]
  - Arthralgia [Unknown]
  - Product use in unapproved indication [Unknown]
  - Incorrect dose administered [Unknown]
